FAERS Safety Report 20698233 (Version 2)
Quarter: 2022Q2

REPORT INFORMATION
  Report Type: Report from Study
  Country: CL (occurrence: CL)
  Receive Date: 20220412
  Receipt Date: 20220418
  Transmission Date: 20220721
  Serious: Yes (Death)
  Sender: FDA-Public Use
  Company Number: CL-BAYER-2022A049402

PATIENT
  Age: 14 Year
  Sex: Male

DRUGS (1)
  1. VENTAVIS [Suspect]
     Active Substance: ILOPROST
     Indication: Pulmonary hypertension
     Dosage: 0.05 ML, QID
     Route: 055
     Dates: start: 20211022, end: 20220217

REACTIONS (2)
  - Cardiac failure [Fatal]
  - Pulmonary haematoma [Fatal]
